FAERS Safety Report 20861028 (Version 1)
Quarter: 2022Q2

REPORT INFORMATION
  Report Type: Spontaneous
  Country: US (occurrence: US)
  Receive Date: 20220523
  Receipt Date: 20220523
  Transmission Date: 20220721
  Serious: No
  Sender: FDA-Public Use
  Company Number: US-JNJFOC-20220532681

PATIENT
  Age: 70 Year
  Sex: Male
  Weight: 81.720 kg

DRUGS (1)
  1. ERLEADA [Suspect]
     Active Substance: APALUTAMIDE
     Indication: Product used for unknown indication
     Route: 048

REACTIONS (4)
  - Haematocrit decreased [Unknown]
  - Fatigue [Unknown]
  - Rash [Recovered/Resolved]
  - Back pain [Unknown]
